FAERS Safety Report 21944533 (Version 1)
Quarter: 2023Q1

REPORT INFORMATION
  Report Type: Spontaneous
  Country: US (occurrence: US)
  Receive Date: 20230202
  Receipt Date: 20230202
  Transmission Date: 20230417
  Serious: Yes (Hospitalization, Other)
  Sender: FDA-Public Use
  Company Number: US-SANOFI-01466391

PATIENT
  Age: 52 Year
  Sex: Male

DRUGS (1)
  1. LOVENOX [Suspect]
     Active Substance: ENOXAPARIN SODIUM
     Indication: Anticoagulant therapy
     Dosage: 120 MG, BID

REACTIONS (8)
  - Anxiety [Unknown]
  - Atypical pneumonia [Unknown]
  - Thrombosis [Unknown]
  - Nightmare [Unknown]
  - Psychotic disorder [Unknown]
  - Lung disorder [Unknown]
  - Drug tolerance [Unknown]
  - Pulmonary embolism [Unknown]
